FAERS Safety Report 4635473-2 (Version None)
Quarter: 2005Q2

REPORT INFORMATION
  Report Type: 
  Country: None (occurrence: None)
  Receive Date: 20050413
  Receipt Date: 20050406
  Transmission Date: 20051028
  Serious: Yes (Hospitalization)
  Sender: FDA-Public Use
  Company Number: 212790

PATIENT
  Age: 45 Year
  Sex: Male

DRUGS (5)
  1. RITUXAN [Suspect]
     Indication: CHRONIC LYMPHOCYTIC LEUKAEMIA
     Dosage: 375 MG, 3/WEEK, INTRAVENOUS
     Route: 042
     Dates: start: 20041214, end: 20050107
  2. ENBREL [Suspect]
     Indication: CHRONIC LYMPHOCYTIC LEUKAEMIA
     Dosage: 25 MG, 2/WEEK, SUBCUTANEOUS
     Route: 058
     Dates: start: 20041208, end: 20050106
  3. TRIMETHOPRIM SULFAMETHOXAZOLE (SUFAMETHOXAZOLE, TRIMETHOPRIM) [Concomitant]
  4. ACYCLOVIR [Concomitant]
  5. LEVOTHYROXINE (LEVOTHYROXINE SODIUM) [Concomitant]

REACTIONS (2)
  - NEUTROPENIC SEPSIS [None]
  - STOMATITIS [None]
